FAERS Safety Report 6612818-5 (Version None)
Quarter: 2010Q1

REPORT INFORMATION
  Report Type: 
  Country: None (occurrence: None)
  Receive Date: 20100303
  Receipt Date: 20091211
  Transmission Date: 20100710
  Serious: No
  Sender: FDA-Public Use
  Company Number: US-ABBOTT-09P-163-0609101-00

PATIENT
  Age: 15 Year
  Sex: Male

DRUGS (3)
  1. BIAXIN XL [Suspect]
     Indication: DRUG USE FOR UNKNOWN INDICATION
     Route: 048
     Dates: start: 20090101
  2. ESCITALOPRAM OXALATE [Interacting]
     Indication: DEPRESSION
     Route: 048
  3. ESCITALOPRAM OXALATE [Interacting]
     Dates: start: 20090101

REACTIONS (2)
  - AGITATION [None]
  - DRUG INTERACTION [None]
